FAERS Safety Report 19427867 (Version 3)
Quarter: 2024Q2

REPORT INFORMATION
  Report Type: Report from Study
  Country: PT (occurrence: PT)
  Receive Date: 20210616
  Receipt Date: 20240405
  Transmission Date: 20240716
  Serious: Yes (Hospitalization)
  Sender: FDA-Public Use
  Company Number: None

PATIENT
  Age: 72 Year
  Sex: Female
  Weight: 65 kg

DRUGS (10)
  1. VELTASSA [Suspect]
     Active Substance: PATIROMER
     Indication: Hyperkalaemia
     Route: 048
     Dates: start: 20210222
  2. VELTASSA [Suspect]
     Active Substance: PATIROMER
     Dosage: 2 SACHETS/DAY WITH FOOD
     Route: 048
     Dates: start: 20210426, end: 20210504
  3. SPIRONOLACTONE [Concomitant]
     Active Substance: SPIRONOLACTONE
  4. SACUBITRIL;VALSARTAN [Concomitant]
  5. APIXABAN [Concomitant]
     Active Substance: APIXABAN
  6. SPIRONOLACTONE [Concomitant]
     Active Substance: SPIRONOLACTONE
  7. ALLOPURINOL [Concomitant]
     Active Substance: ALLOPURINOL
  8. BISOPROLOL [Concomitant]
     Active Substance: BISOPROLOL\BISOPROLOL FUMARATE
  9. FUROSEMIDE [Concomitant]
     Active Substance: FUROSEMIDE
  10. ATORVASTATIN [Concomitant]
     Active Substance: ATORVASTATIN

REACTIONS (4)
  - Metabolic acidosis [Recovered/Resolved]
  - Metabolic acidosis [Unknown]
  - Metabolic acidosis [Unknown]
  - Acidosis [Unknown]

NARRATIVE: CASE EVENT DATE: 20210101
